FAERS Safety Report 17421613 (Version 3)
Quarter: 2020Q1

REPORT INFORMATION
  Report Type: Spontaneous
  Country: US (occurrence: US)
  Receive Date: 20200214
  Receipt Date: 20200319
  Transmission Date: 20200409
  Serious: Yes (Other)
  Sender: FDA-Public Use
  Company Number: US-ACTELION-A-US2020-201690

PATIENT
  Age: 73 Year
  Sex: Male

DRUGS (5)
  1. TYVASO [Suspect]
     Active Substance: TREPROSTINIL
     Indication: PULMONARY ARTERIAL HYPERTENSION
     Dosage: UNK
     Route: 065
  2. OXYGEN. [Concomitant]
     Active Substance: OXYGEN
     Indication: OXYGEN SATURATION DECREASED
     Dosage: 3 L
  3. OPSUMIT [Suspect]
     Active Substance: MACITENTAN
     Indication: PULMONARY ARTERIAL HYPERTENSION
     Dosage: 10 MG, QD
     Route: 048
     Dates: start: 202001
  4. OXYGEN. [Concomitant]
     Active Substance: OXYGEN
     Dosage: 4 L
  5. TADALAFIL. [Concomitant]
     Active Substance: TADALAFIL
     Dosage: 20 MG, BID

REACTIONS (11)
  - Oxygen saturation decreased [Not Recovered/Not Resolved]
  - Exercise test abnormal [Not Recovered/Not Resolved]
  - Dyspnoea at rest [Not Recovered/Not Resolved]
  - Increased upper airway secretion [Not Recovered/Not Resolved]
  - Nasal congestion [Unknown]
  - Decreased activity [Not Recovered/Not Resolved]
  - Dyspnoea [Unknown]
  - Oropharyngeal discomfort [Not Recovered/Not Resolved]
  - Therapy non-responder [Not Recovered/Not Resolved]
  - Fatigue [Not Recovered/Not Resolved]
  - Cough [Not Recovered/Not Resolved]

NARRATIVE: CASE EVENT DATE: 202001
